FAERS Safety Report 9769920 (Version 1)
Quarter: 2013Q4

REPORT INFORMATION
  Report Type: Spontaneous
  Country: US (occurrence: US)
  Receive Date: 20131218
  Receipt Date: 20131218
  Transmission Date: 20140711
  Serious: No
  Sender: FDA-Public Use
  Company Number: US-VERTEX PHARMACEUTICALS INC-AE-2011-000818

PATIENT
  Age: 60 Year
  Sex: Male
  Weight: 85.46 kg

DRUGS (6)
  1. INCIVEK [Suspect]
     Indication: HEPATITIS C
     Route: 048
     Dates: start: 20110808
  2. PEGASYS [Concomitant]
     Indication: HEPATITIS C
     Route: 058
     Dates: start: 20110808
  3. RIBAVIRIN [Concomitant]
     Indication: HEPATITIS C
     Route: 048
     Dates: start: 20110808
  4. LASIX [Concomitant]
     Route: 048
     Dates: start: 2011
  5. SPIRONOLACTONE [Concomitant]
     Dates: start: 2011
  6. NEXIUM [Concomitant]
     Dates: start: 2011

REACTIONS (1)
  - Inappropriate schedule of drug administration [Recovered/Resolved]
